FAERS Safety Report 13478001 (Version 1)
Quarter: 2017Q2

REPORT INFORMATION
  Report Type: Spontaneous
  Country: IT (occurrence: IT)
  Receive Date: 20170425
  Receipt Date: 20170425
  Transmission Date: 20170830
  Serious: Yes (Hospitalization)
  Sender: FDA-Public Use
  Company Number: IT-TEVA-761271ACC

PATIENT
  Age: 73 Year
  Sex: Male

DRUGS (1)
  1. TEVAGRASTIM - 30 MUI (300 MCG/0,5ML) [Suspect]
     Active Substance: FILGRASTIM
     Indication: PRODUCT USED FOR UNKNOWN INDICATION
     Dosage: 30 IU (INTERNATIONAL UNIT) DAILY;
     Route: 058
     Dates: start: 20170324, end: 20170329

REACTIONS (1)
  - Febrile neutropenia [Unknown]

NARRATIVE: CASE EVENT DATE: 20170330
